FAERS Safety Report 8062495-4 (Version None)
Quarter: 2012Q1

REPORT INFORMATION
  Report Type: 
  Country: None (occurrence: None)
  Receive Date: 20120123
  Receipt Date: 20120113
  Transmission Date: 20120608
  Serious: Yes (Other)
  Sender: FDA-Public Use
  Company Number: US-BAYER-2011-028468

PATIENT
  Age: 27 Year
  Sex: Female
  Weight: 96.8 kg

DRUGS (7)
  1. YASMIN [Suspect]
     Indication: CONTRACEPTION
     Dosage: UNK
     Dates: start: 20051101, end: 20100701
  2. CELEXA [Concomitant]
     Dosage: 40 MG, QD
     Route: 048
  3. ADVAIR DISKUS 100/50 [Concomitant]
     Dosage: 1 PUFF(S), UNK
     Route: 055
  4. XANAX [Concomitant]
     Dosage: 1 MG, UNK
     Route: 048
  5. YAZ [Suspect]
  6. PROVENTIL [Concomitant]
     Dosage: 90 UNK, UNK
     Route: 055
  7. XOPENEX [Concomitant]
     Dosage: 2 PUFF(S), UNK
     Route: 055

REACTIONS (8)
  - GENERAL PHYSICAL HEALTH DETERIORATION [None]
  - CHOLECYSTECTOMY [None]
  - CHOLECYSTITIS ACUTE [None]
  - INJURY [None]
  - PAIN [None]
  - ANXIETY [None]
  - ANHEDONIA [None]
  - EMOTIONAL DISTRESS [None]
